FAERS Safety Report 5692124-6 (Version None)
Quarter: 2008Q2

REPORT INFORMATION
  Report Type: 
  Country: None (occurrence: None)
  Receive Date: 20080402
  Receipt Date: 20080321
  Transmission Date: 20081010
  Serious: Yes (Disabling)
  Sender: FDA-Public Use
  Company Number: GB-PFIZER INC-2008026437

PATIENT
  Age: 38 Year
  Sex: Female
  Weight: 86 kg

DRUGS (5)
  1. PREGABALIN [Suspect]
     Indication: TRIGEMINAL NEURALGIA
     Route: 048
  2. DICLOFENAC SODIUM [Concomitant]
     Route: 048
  3. ORLISTAT [Concomitant]
     Route: 048
  4. SENNA [Concomitant]
     Route: 048
  5. TRAMADOL HCL [Concomitant]
     Route: 048

REACTIONS (2)
  - HAEMORRHAGE [None]
  - THROMBOSIS [None]
